FAERS Safety Report 8289992-0 (Version None)
Quarter: 2012Q2

REPORT INFORMATION
  Report Type: 
  Country: None (occurrence: None)
  Receive Date: 20120417
  Receipt Date: 20120411
  Transmission Date: 20120825
  Serious: Yes (Death, Other)
  Sender: FDA-Public Use
  Company Number: IT-CELGENEUS-083-21880-12031996

PATIENT
  Sex: Male

DRUGS (6)
  1. REVLIMID [Suspect]
     Dosage: 10 MILLIGRAM
     Route: 048
     Dates: start: 20100325
  2. CARDIOASPIRINE [Concomitant]
     Route: 065
     Dates: start: 20100325
  3. CARDIOASPIRINE [Concomitant]
     Route: 065
     Dates: start: 20101217
  4. MELPHALAN HYDROCHLORIDE [Suspect]
     Indication: MULTIPLE MYELOMA
     Route: 065
     Dates: start: 20100325, end: 20101126
  5. REVLIMID [Suspect]
     Indication: MULTIPLE MYELOMA
     Dosage: 10 MILLIGRAM
     Route: 048
     Dates: start: 20101217, end: 20111007
  6. PREDNISONE TAB [Suspect]
     Indication: MULTIPLE MYELOMA
     Route: 065
     Dates: start: 20100325, end: 20101126

REACTIONS (1)
  - ADENOCARCINOMA PANCREAS [None]
